FAERS Safety Report 11155438 (Version 1)
Quarter: 2015Q2

REPORT INFORMATION
  Report Type: Spontaneous
  Country: US (occurrence: None)
  Receive Date: 20150529
  Receipt Date: 20150529
  Transmission Date: 20150821
  Serious: Yes (Other)
  Sender: FDA-Public Use
  Company Number: None

PATIENT
  Age: 59 Year
  Sex: Female

DRUGS (1)
  1. XELODA [Suspect]
     Active Substance: CAPECITABINE

REACTIONS (4)
  - Vomiting [None]
  - Asthenia [None]
  - Dysgeusia [None]
  - Decreased appetite [None]

NARRATIVE: CASE EVENT DATE: 20150527
